FAERS Safety Report 9074395 (Version 1)
Quarter: 2013Q1

REPORT INFORMATION
  Report Type: Report from Study
  Country: US (occurrence: US)
  Receive Date: 20130129
  Receipt Date: 20130129
  Transmission Date: 20140127
  Serious: Yes (Hospitalization, Other)
  Sender: FDA-Public Use
  Company Number: US-ABBOTT-12P-163-0931122-00

PATIENT
  Age: 46 Year
  Sex: Male

DRUGS (7)
  1. HUMIRA 40 MG/0.8 ML PEN [Suspect]
     Indication: CROHN^S DISEASE
     Dates: start: 201101, end: 201110
  2. PENTASA [Concomitant]
     Indication: PRODUCT USED FOR UNKNOWN INDICATION
  3. BUSPAR [Concomitant]
     Indication: ANXIETY
  4. NORCO [Concomitant]
     Indication: PAIN
  5. NEXIUM [Concomitant]
     Indication: GASTRIC DISORDER
  6. LORAZEPAM [Concomitant]
     Indication: INSOMNIA
  7. MULTIVITAMIN [Concomitant]
     Indication: PRODUCT USED FOR UNKNOWN INDICATION

REACTIONS (3)
  - Intestinal resection [Not Recovered/Not Resolved]
  - Fistula repair [Not Recovered/Not Resolved]
  - Infection [Not Recovered/Not Resolved]
